FAERS Safety Report 11758830 (Version 9)
Quarter: 2016Q4

REPORT INFORMATION
  Report Type: Spontaneous
  Country: TW (occurrence: TW)
  Receive Date: 20151120
  Receipt Date: 20161110
  Transmission Date: 20170206
  Serious: Yes (Hospitalization, Other)
  Sender: FDA-Public Use
  Company Number: TW-PFIZER INC-2015243616

PATIENT
  Age: 52 Year
  Sex: Female

DRUGS (4)
  1. SUTENT [Suspect]
     Active Substance: SUNITINIB MALATE
     Dosage: 37.5 MG, EVERY OTHER DAY
     Route: 048
     Dates: start: 2016, end: 2016
  2. SUTENT [Suspect]
     Active Substance: SUNITINIB MALATE
     Dosage: 37.5 MG, 1X/DAY
     Route: 048
     Dates: start: 20151210, end: 20151228
  3. SUTENT [Suspect]
     Active Substance: SUNITINIB MALATE
     Indication: PANCREATIC NEUROENDOCRINE TUMOUR
     Dosage: 37.5 MG, 1X/DAY
     Route: 048
     Dates: start: 20150615, end: 20151109
  4. SUTENT [Suspect]
     Active Substance: SUNITINIB MALATE
     Dosage: 37.5 MG, DAILY (ONE DAY ON AND TWO DAYS OFF)
     Route: 048
     Dates: start: 2016

REACTIONS (13)
  - Dizziness [Unknown]
  - Haematemesis [Recovering/Resolving]
  - Bone pain [Recovered/Resolved]
  - Asthenia [Recovered/Resolved]
  - Haemorrhage [Unknown]
  - Melaena [Recovering/Resolving]
  - Blood pressure increased [Recovered/Resolved]
  - Gastric varices [Unknown]
  - Decreased appetite [Not Recovered/Not Resolved]
  - Palmar-plantar erythrodysaesthesia syndrome [Not Recovered/Not Resolved]
  - Vomiting [Recovered/Resolved]
  - Mouth ulceration [Not Recovered/Not Resolved]
  - Haemoglobin decreased [Recovered/Resolved]

NARRATIVE: CASE EVENT DATE: 201507
